FAERS Safety Report 5526796-3 (Version None)
Quarter: 2007Q4

REPORT INFORMATION
  Report Type: 
  Country: None (occurrence: None)
  Receive Date: 20071127
  Receipt Date: 20071115
  Transmission Date: 20080405
  Serious: Yes (Hospitalization, Other)
  Sender: FDA-Public Use
  Company Number: US-ROCHE-524444

PATIENT
  Age: 49 Year
  Sex: Male

DRUGS (6)
  1. PEGASYS [Suspect]
     Indication: HEPATITIS C
     Route: 065
  2. COPEGUS [Suspect]
     Indication: HEPATITIS C
     Route: 065
  3. LASIX [Concomitant]
  4. ALDACTONE [Concomitant]
  5. PROTONIX [Concomitant]
  6. NADOLOL [Concomitant]

REACTIONS (6)
  - BACTERAEMIA [None]
  - NEUTROPENIA [None]
  - PANCYTOPENIA [None]
  - PERITONITIS BACTERIAL [None]
  - SEPSIS [None]
  - UMBILICAL HERNIA [None]
